FAERS Safety Report 24079025 (Version 1)
Quarter: 2024Q3

REPORT INFORMATION
  Report Type: Report from Study
  Country: US (occurrence: US)
  Receive Date: 20240711
  Receipt Date: 20240711
  Transmission Date: 20241017
  Serious: Yes (Hospitalization)
  Sender: ROCHE
  Company Number: US-ROCHE-3040984

PATIENT
  Age: 73 Year
  Sex: Male
  Weight: 97.52 kg

DRUGS (8)
  1. OCREVUS [Suspect]
     Active Substance: OCRELIZUMAB
     Indication: Primary progressive multiple sclerosis
     Dosage: 2 SEPARATE INFUSIONS 2 WEEKS APART
     Route: 042
     Dates: start: 20200123, end: 20201003
  2. COVID-19 VACCINE NOS [Suspect]
     Active Substance: COVID-19 VACCINE
     Indication: COVID-19 prophylaxis
     Dosage: HAD ALL THE NECESSARY VACCINATIONS BUT COULD NOT PROVIDE THE DATES.
     Route: 030
  3. AMPYRA [Concomitant]
     Active Substance: DALFAMPRIDINE
     Dosage: 2 TABLETS DAILY
     Route: 048
  4. TECFIDERA [Concomitant]
     Active Substance: DIMETHYL FUMARATE
  5. ATENOLOL [Concomitant]
     Active Substance: ATENOLOL
     Dosage: STARTED ABOUT 10 YEARS AGO OR LONGER.
     Route: 048
  6. TAMSULOSIN [Concomitant]
     Active Substance: TAMSULOSIN
  7. DALFAMPRIDINE [Concomitant]
     Active Substance: DALFAMPRIDINE
     Indication: Gait disturbance
     Dosage: STARTED A LONG TIME AGO WHEN HE WAS TAKING TECFIDERA.
     Route: 048
  8. DALFAMPRIDINE [Concomitant]
     Active Substance: DALFAMPRIDINE
     Indication: Multiple sclerosis

REACTIONS (7)
  - General physical health deterioration [Not Recovered/Not Resolved]
  - Gait disturbance [Not Recovered/Not Resolved]
  - Nerve compression [Not Recovered/Not Resolved]
  - Drug ineffective [Unknown]
  - Immunisation reaction [Recovered/Resolved]
  - COVID-19 [Recovered/Resolved]
  - Therapeutic response shortened [Not Recovered/Not Resolved]

NARRATIVE: CASE EVENT DATE: 20210101
